FAERS Safety Report 4499374-5 (Version None)
Quarter: 2004Q3

REPORT INFORMATION
  Report Type: 
  Country: None (occurrence: None)
  Receive Date: 20040928
  Receipt Date: 20040806
  Transmission Date: 20050211
  Serious: No
  Sender: FDA-Public Use
  Company Number: 04P-163-0269596-00

PATIENT
  Age: 55 Year
  Sex: Female

DRUGS (4)
  1. HUMIRA [Suspect]
     Indication: RHEUMATOID ARTHRITIS
     Dosage: 40 MG, 1 IN 2 WK, SUBCUTANEOUS
     Route: 058
     Dates: start: 20031001, end: 20040804
  2. PRAVASTATIN SODIUM [Concomitant]
  3. FOLIC ACID [Concomitant]
  4. CEPHALEXIN [Concomitant]

REACTIONS (2)
  - BLISTER [None]
  - SKIN DISCOLOURATION [None]
